FAERS Safety Report 4430244-4 (Version None)
Quarter: 2004Q3

REPORT INFORMATION
  Report Type: 
  Country: None (occurrence: None)
  Receive Date: 20040820
  Receipt Date: 20040525
  Transmission Date: 20050211
  Serious: Yes (Hospitalization)
  Sender: FDA-Public Use
  Company Number: FR-GLAXOSMITHKLINE-B0333924A

PATIENT
  Age: 81 Year
  Sex: Male

DRUGS (7)
  1. DEROXAT [Suspect]
     Dosage: 10MG PER DAY
     Route: 048
     Dates: start: 20040311, end: 20040412
  2. LEXOMIL [Suspect]
     Dosage: 1.5UNIT PER DAY
     Route: 048
     Dates: start: 20040311, end: 20040412
  3. TRIATEC [Concomitant]
  4. TRIMETAZIDINE [Concomitant]
  5. INEXIUM [Concomitant]
  6. DEBRIDAT [Concomitant]
  7. SYMPAVAGOL [Concomitant]

REACTIONS (6)
  - ABDOMINAL PAIN [None]
  - CONSTIPATION [None]
  - GASTROOESOPHAGEAL REFLUX DISEASE [None]
  - HYPERREFLEXIA [None]
  - HYPERTONIA [None]
  - TREMOR [None]
